FAERS Safety Report 4915859-9 (Version None)
Quarter: 2006Q1

REPORT INFORMATION
  Report Type: 
  Country: None (occurrence: None)
  Receive Date: 20060214
  Receipt Date: 20060202
  Transmission Date: 20060701
  Serious: Yes (Hospitalization, Other)
  Sender: FDA-Public Use
  Company Number: 2006018583

PATIENT
  Age: 73 Year
  Sex: Male
  Weight: 83.4619 kg

DRUGS (4)
  1. CELEBREX [Suspect]
     Indication: OSTEOARTHRITIS
     Dates: end: 20030301
  2. VIOXX [Suspect]
     Indication: OSTEOARTHRITIS
  3. OTHER ANTIHYPERTENSIVES [Concomitant]
  4. TAMSULOSIN HCL [Concomitant]

REACTIONS (5)
  - ATRIAL FIBRILLATION [None]
  - CARDIAC ARREST [None]
  - FEELING ABNORMAL [None]
  - HEART RATE INCREASED [None]
  - MYOCARDIAL INFARCTION [None]
